FAERS Safety Report 6822572-X (Version None)
Quarter: 2010Q3

REPORT INFORMATION
  Report Type: 
  Country: None (occurrence: None)
  Receive Date: 20100702
  Receipt Date: 20100621
  Transmission Date: 20110219
  Serious: Yes (Disabling, Other)
  Sender: FDA-Public Use
  Company Number: ACO_00751_2010

PATIENT
  Age: 36 Year
  Sex: Male
  Weight: 77.1115 kg

DRUGS (4)
  1. AMPYRA [Suspect]
     Indication: GAIT DISTURBANCE
     Dosage: 10 MG BID ORAL, DF ORAL
     Route: 048
     Dates: start: 20100420, end: 20100401
  2. AMPYRA [Suspect]
     Indication: GAIT DISTURBANCE
     Dosage: 10 MG BID ORAL, DF ORAL
     Route: 048
     Dates: start: 20100601
  3. COPAXONE [Concomitant]
  4. BACLOFEN [Concomitant]

REACTIONS (8)
  - ABASIA [None]
  - BALANCE DISORDER [None]
  - CONDITION AGGRAVATED [None]
  - DIZZINESS [None]
  - FEELING ABNORMAL [None]
  - HEAD DISCOMFORT [None]
  - INSOMNIA [None]
  - SINUS DISORDER [None]
